FAERS Safety Report 18859693 (Version 1)
Quarter: 2021Q1

REPORT INFORMATION
  Report Type: Spontaneous
  Country: US (occurrence: US)
  Receive Date: 20210208
  Receipt Date: 20210208
  Transmission Date: 20210420
  Serious: Yes (Other)
  Sender: FDA-Public Use
  Company Number: None

PATIENT
  Age: 39 Year
  Sex: Female
  Weight: 59.9 kg

DRUGS (6)
  1. ACETAMINOPHEN. [Concomitant]
     Active Substance: ACETAMINOPHEN
  2. ENBREL [Suspect]
     Active Substance: ETANERCEPT
  3. TALTZ [Suspect]
     Active Substance: IXEKIZUMAB
     Indication: PSORIATIC ARTHROPATHY
     Dosage: OTHER FREQUENCY:ONCE;?
     Route: 058
     Dates: start: 20210128, end: 20210204
  4. NAPROXEN. [Concomitant]
     Active Substance: NAPROXEN
  5. BOTOX [Concomitant]
     Active Substance: ONABOTULINUMTOXINA
  6. OMEPRAZOLE. [Concomitant]
     Active Substance: OMEPRAZOLE

REACTIONS (10)
  - Injection site pain [None]
  - Pruritus [None]
  - Migraine [None]
  - Photosensitivity reaction [None]
  - Hyperacusis [None]
  - Injection site mass [None]
  - Injection site discomfort [None]
  - Pyrexia [None]
  - Injection site erythema [None]
  - Urticaria [None]

NARRATIVE: CASE EVENT DATE: 20210128
